FAERS Safety Report 24006423 (Version 2)
Quarter: 2024Q3

REPORT INFORMATION
  Report Type: Report from Study
  Country: IT (occurrence: IT)
  Receive Date: 20240624
  Receipt Date: 20240701
  Transmission Date: 20241016
  Serious: Yes (Death, Hospitalization)
  Sender: MYLAN
  Company Number: None

PATIENT
  Age: 81 Year
  Sex: Female
  Weight: 65 kg

DRUGS (2)
  1. PACLITAXEL [Suspect]
     Active Substance: PACLITAXEL
     Indication: Breast neoplasm
     Dosage: DAYS 1-8-15 EVERY 28 DAYS
     Route: 042
     Dates: start: 20240304, end: 20240515
  2. PEMBROLIZUMAB [Suspect]
     Active Substance: PEMBROLIZUMAB
     Indication: Breast neoplasm
     Dosage: 200 MILLIGRAM, Q21D, 200 MG EVERY 21 DAYS
     Route: 042
     Dates: start: 20240430, end: 20240520

REACTIONS (1)
  - Miller Fisher syndrome [Fatal]

NARRATIVE: CASE EVENT DATE: 20240524
